FAERS Safety Report 7990181-5 (Version None)
Quarter: 2011Q4

REPORT INFORMATION
  Report Type: 
  Country: None (occurrence: None)
  Receive Date: 20111219
  Receipt Date: 20111207
  Transmission Date: 20120403
  Serious: Yes (Hospitalization, Other)
  Sender: FDA-Public Use
  Company Number: US-BAYER-201033446NA

PATIENT
  Age: 33 Year
  Sex: Female
  Weight: 77.098 kg

DRUGS (1)
  1. YASMIN [Suspect]
     Indication: ORAL CONTRACEPTION
     Route: 048

REACTIONS (11)
  - CHOLECYSTECTOMY [None]
  - CONSTIPATION [None]
  - ABDOMINAL PAIN [None]
  - BILIARY DYSKINESIA [None]
  - FLATULENCE [None]
  - ANXIETY [None]
  - CHOLECYSTITIS CHRONIC [None]
  - DEPRESSION [None]
  - DYSPEPSIA [None]
  - DIARRHOEA [None]
  - ABDOMINAL DISTENSION [None]
